FAERS Safety Report 18998738 (Version 1)
Quarter: 2021Q1

REPORT INFORMATION
  Report Type: Spontaneous
  Country: US (occurrence: US)
  Receive Date: 20210311
  Receipt Date: 20210311
  Transmission Date: 20210420
  Serious: Yes (Hospitalization, Disabling, Other)
  Sender: FDA-Public Use
  Company Number: US-UPSHER-SMITH LABORATORIES, LLC-2021USL00162

PATIENT
  Sex: Male

DRUGS (1)
  1. AMIODARONE HYDROCHLORIDE. [Suspect]
     Active Substance: AMIODARONE HYDROCHLORIDE
     Indication: ATRIAL FIBRILLATION
     Dosage: UNK
     Route: 048
     Dates: start: 201202, end: 2016

REACTIONS (20)
  - Atypical pneumonia [Unknown]
  - Anxiety [Unknown]
  - Thyroid function test abnormal [Unknown]
  - Unevaluable event [Unknown]
  - Off label use [Recovered/Resolved]
  - Interstitial lung disease [Unknown]
  - Pulmonary haemorrhage [Unknown]
  - Hepatic enzyme abnormal [Unknown]
  - Diaphragmatic paralysis [Unknown]
  - Heart rate irregular [Unknown]
  - Depression [Unknown]
  - Chronic respiratory failure [Unknown]
  - Pulmonary fibrosis [Unknown]
  - Mobility decreased [Unknown]
  - Pulmonary oedema [Unknown]
  - Respiratory paralysis [Unknown]
  - Asthenia [Unknown]
  - Hepatic enzyme increased [Unknown]
  - Restrictive pulmonary disease [Unknown]
  - Cardiac failure [Unknown]

NARRATIVE: CASE EVENT DATE: 201202
